FAERS Safety Report 7642708-0 (Version None)
Quarter: 2011Q3

REPORT INFORMATION
  Report Type: 
  Country: None (occurrence: None)
  Receive Date: 20110728
  Receipt Date: 20110726
  Transmission Date: 20111222
  Serious: No
  Sender: FDA-Public Use
  Company Number: US-PFIZER INC-2011169978

PATIENT
  Sex: Female
  Weight: 82 kg

DRUGS (6)
  1. EVISTA [Concomitant]
     Indication: OSTEOPOROSIS
     Dosage: 60 MG, DAILY
  2. EVISTA [Concomitant]
     Indication: NEOPLASM MALIGNANT
  3. ABILIFY [Concomitant]
     Indication: ANTIDEPRESSANT THERAPY
     Dosage: 2 MG, DAILY
  4. LEXAPRO [Concomitant]
     Indication: ANTIDEPRESSANT THERAPY
     Dosage: 20 MG, UNK
  5. DETROL [Suspect]
     Indication: INCONTINENCE
     Dosage: 4 MG, DAILY
     Dates: start: 20110601, end: 20110719
  6. LISINOPRIL [Concomitant]
     Indication: HYPERTENSION
     Dosage: 20 MG, DAILY

REACTIONS (2)
  - MOUTH ULCERATION [None]
  - DRY MOUTH [None]
